FAERS Safety Report 11940596 (Version 1)
Quarter: 2016Q1

REPORT INFORMATION
  Report Type: Report from Study
  Country: US (occurrence: US)
  Receive Date: 20160122
  Receipt Date: 20160122
  Transmission Date: 20160526
  Serious: Yes (Other)
  Sender: FDA-Public Use
  Company Number: PHEH2013US024648

PATIENT
  Sex: Female

DRUGS (2)
  1. TOBI [Suspect]
     Active Substance: TOBRAMYCIN
     Indication: LUNG INFECTION
  2. TOBI [Suspect]
     Active Substance: TOBRAMYCIN
     Indication: CHRONIC OBSTRUCTIVE PULMONARY DISEASE
     Dosage: 7.5 ML, (TWICE A DAY FOR 1 WEEK EACH MONTH)
     Route: 055
     Dates: start: 2003

REACTIONS (4)
  - Dysphonia [Unknown]
  - Deafness [Not Recovered/Not Resolved]
  - Product use issue [Unknown]
  - Tinnitus [Unknown]

NARRATIVE: CASE EVENT DATE: 2004
